FAERS Safety Report 4413212-8 (Version None)
Quarter: 2004Q3

REPORT INFORMATION
  Report Type: 
  Country: None (occurrence: None)
  Receive Date: 20040730
  Receipt Date: 20040730
  Transmission Date: 20050211
  Serious: Yes (Hospitalization)
  Sender: FDA-Public Use
  Company Number: None

PATIENT
  Age: 85 Year
  Sex: Female

DRUGS (1)
  1. ALEVE [Suspect]
     Dosage: 200 MG PO BID
     Route: 048

REACTIONS (8)
  - ASTHENIA [None]
  - GASTRIC ULCER [None]
  - GASTRITIS [None]
  - GASTROINTESTINAL HAEMORRHAGE [None]
  - HAEMATEMESIS [None]
  - HAEMATOCRIT DECREASED [None]
  - MELAENA [None]
  - WEIGHT DECREASED [None]
